FAERS Safety Report 8564654-0 (Version None)
Quarter: 2012Q3

REPORT INFORMATION
  Report Type: 
  Country: None (occurrence: None)
  Receive Date: 20120803
  Receipt Date: 20120723
  Transmission Date: 20120928
  Serious: Yes (Hospitalization, Other)
  Sender: FDA-Public Use
  Company Number: US-SANOFI-AVENTIS-2012SA012439

PATIENT
  Age: 20 Year
  Sex: Male

DRUGS (1)
  1. BENZACLIN [Suspect]
     Indication: ACNE
     Dates: start: 20070101

REACTIONS (17)
  - ILEITIS [None]
  - LOSS OF CONSCIOUSNESS [None]
  - NIGHT SWEATS [None]
  - TACHYCARDIA [None]
  - GASTROINTESTINAL HAEMORRHAGE [None]
  - OESOPHAGEAL ULCER [None]
  - LEUKOCYTOSIS [None]
  - COLITIS ULCERATIVE [None]
  - ABDOMINAL PAIN [None]
  - DIARRHOEA [None]
  - ODYNOPHAGIA [None]
  - ANAEMIA [None]
  - CROHN'S DISEASE [None]
  - PYREXIA [None]
  - NAUSEA [None]
  - SMALL INTESTINAL OBSTRUCTION [None]
  - VOMITING [None]
